FAERS Safety Report 8461292-5 (Version None)
Quarter: 2012Q2

REPORT INFORMATION
  Report Type: 
  Country: None (occurrence: None)
  Receive Date: 20120625
  Receipt Date: 20120614
  Transmission Date: 20120825
  Serious: Yes (Disabling)
  Sender: FDA-Public Use
  Company Number: US-JNJFOC-20120607877

PATIENT
  Sex: Female
  Weight: 83.92 kg

DRUGS (15)
  1. DURAGESIC-100 [Suspect]
     Indication: PAIN
     Dosage: 100 UG/HR + 50 UG/HR
     Route: 062
     Dates: start: 20020101, end: 20090101
  2. TRAMADOL HCL [Concomitant]
     Route: 048
  3. LIPITOR [Concomitant]
     Indication: BLOOD CHOLESTEROL
     Route: 048
  4. OMEPRAZOLE [Concomitant]
     Indication: GASTRIC DISORDER
     Route: 048
  5. VICODIN [Concomitant]
     Indication: BREAKTHROUGH PAIN
     Route: 048
  6. DIOVAN [Concomitant]
     Indication: BLOOD PRESSURE
     Route: 048
  7. UNKNOWN MEDICATION [Concomitant]
  8. PYRIDOXINE HCL [Concomitant]
     Indication: CONVULSION
     Route: 048
  9. DURAGESIC-100 [Suspect]
     Dosage: 100 UG/HR + 50 UG/HR
     Route: 062
     Dates: start: 20090101
  10. LASIX [Concomitant]
     Indication: CARDIAC FAILURE CONGESTIVE
     Route: 048
  11. ATENOLOL [Concomitant]
     Route: 047
  12. ALLOPURINOL [Concomitant]
     Indication: GOUT
     Route: 048
  13. ALPRAZOLAM [Concomitant]
     Indication: NERVOUSNESS
     Route: 048
  14. UNKNOWN MEDICATION [Concomitant]
     Indication: MINERAL SUPPLEMENTATION
     Route: 048
  15. ATROVENT [Concomitant]
     Indication: CHRONIC OBSTRUCTIVE PULMONARY DISEASE
     Route: 048

REACTIONS (5)
  - EAR PAIN [None]
  - INFLUENZA [None]
  - DRUG ADMINISTERED AT INAPPROPRIATE SITE [None]
  - BODY HEIGHT DECREASED [None]
  - ADVERSE EVENT [None]
